FAERS Safety Report 24219069 (Version 6)
Quarter: 2024Q4

REPORT INFORMATION
  Report Type: Report from Study
  Country: US (occurrence: US)
  Receive Date: 20240816
  Receipt Date: 20241002
  Transmission Date: 20250114
  Serious: No
  Sender: ALEXION PHARMACEUTICALS
  Company Number: US-AstraZeneca-CH-00682457A

PATIENT
  Age: 65 Year

DRUGS (16)
  1. STRENSIQ [Suspect]
     Active Substance: ASFOTASE ALFA
     Indication: Hypophosphatasia
     Dosage: 164 MILLIGRAM, TIW
  2. STRENSIQ [Suspect]
     Active Substance: ASFOTASE ALFA
     Dosage: 164 MILLIGRAM, TIW
  3. STRENSIQ [Suspect]
     Active Substance: ASFOTASE ALFA
     Dosage: 164 MILLIGRAM, TIW
  4. STRENSIQ [Suspect]
     Active Substance: ASFOTASE ALFA
     Dosage: 164 MILLIGRAM, TIW
  5. STRENSIQ [Suspect]
     Active Substance: ASFOTASE ALFA
     Dosage: 80 MILLIGRAM
     Route: 065
  6. STRENSIQ [Suspect]
     Active Substance: ASFOTASE ALFA
     Dosage: 80 MILLIGRAM
  7. STRENSIQ [Suspect]
     Active Substance: ASFOTASE ALFA
     Dosage: 80 MILLIGRAM
     Route: 065
  8. STRENSIQ [Suspect]
     Active Substance: ASFOTASE ALFA
     Dosage: 80 MILLIGRAM
  9. STRENSIQ [Suspect]
     Active Substance: ASFOTASE ALFA
     Dosage: 80 MILLIGRAM
     Route: 065
  10. STRENSIQ [Suspect]
     Active Substance: ASFOTASE ALFA
     Dosage: 80 MILLIGRAM
     Route: 065
  11. STRENSIQ [Suspect]
     Active Substance: ASFOTASE ALFA
     Dosage: 80 MILLIGRAM
  12. STRENSIQ [Suspect]
     Active Substance: ASFOTASE ALFA
     Dosage: 80 MILLIGRAM
  13. STRENSIQ [Suspect]
     Active Substance: ASFOTASE ALFA
     Dosage: 18 MILLIGRAM, TIW
  14. STRENSIQ [Suspect]
     Active Substance: ASFOTASE ALFA
     Dosage: 18 MILLIGRAM, TIW
  15. STRENSIQ [Suspect]
     Active Substance: ASFOTASE ALFA
     Dosage: 18 MILLIGRAM, TIW
  16. STRENSIQ [Suspect]
     Active Substance: ASFOTASE ALFA
     Dosage: 18 MILLIGRAM, TIW

REACTIONS (9)
  - Needle issue [Recovered/Resolved]
  - Animal scratch [Unknown]
  - Skin laceration [Unknown]
  - Sensitivity to weather change [Unknown]
  - Injection site bruising [Not Recovered/Not Resolved]
  - Injection site erythema [Not Recovered/Not Resolved]
  - Injection site swelling [Recovered/Resolved]
  - Injection site pain [Not Recovered/Not Resolved]
  - Injection site discolouration [Not Recovered/Not Resolved]
